FAERS Safety Report 7064712-6 (Version None)
Quarter: 2010Q4

REPORT INFORMATION
  Report Type: 
  Country: None (occurrence: None)
  Receive Date: 20101027
  Receipt Date: 19950406
  Transmission Date: 20110411
  Serious: Yes (Death, Hospitalization)
  Sender: FDA-Public Use
  Company Number: DE-ROCHE-42931

PATIENT
  Sex: Male

DRUGS (21)
  1. CYMEVENE [Suspect]
     Route: 042
     Dates: start: 19941212, end: 19950301
  2. FOSCAVIR [Concomitant]
     Dates: start: 19941229, end: 19950222
  3. CIPRO [Concomitant]
     Dates: start: 19941217, end: 19950104
  4. GENTAMICIN SULFATE [Concomitant]
     Dates: start: 19941221, end: 19950123
  5. PIPRIL [Concomitant]
     Dates: start: 19950109, end: 19950113
  6. AMPICILLIN AND SULBACTAM [Concomitant]
     Dates: start: 19950113, end: 19950131
  7. COTRIM [Concomitant]
     Dates: start: 19941226, end: 19950228
  8. DIFLUCAN [Concomitant]
     Dates: start: 19941216, end: 19941219
  9. SEMPERA [Concomitant]
     Dates: start: 19941219
  10. AMPHOTERICIN B [Concomitant]
     Dates: start: 19941219, end: 19941224
  11. ANCOTIL [Concomitant]
     Dates: start: 19941219, end: 19941224
  12. VERGENTAN [Concomitant]
     Dates: start: 19941230, end: 19950119
  13. ATOSIL [Concomitant]
     Dates: start: 19941230, end: 19950119
  14. DIPIDOLOR [Concomitant]
     Dates: start: 19941230, end: 19950119
  15. CAPTOPRIL [Concomitant]
     Dates: start: 19941230, end: 19950119
  16. FAMOTIDINE [Concomitant]
     Dates: start: 19941230, end: 19950119
  17. URBASON [Concomitant]
     Dates: start: 19941230, end: 19950119
  18. DIAZEPAM [Concomitant]
     Dates: start: 19941230, end: 19950119
  19. MORPHINE SULFATE [Concomitant]
     Dates: start: 19941230, end: 19950119
  20. ULTRACORTEN [Concomitant]
     Dates: start: 19941230, end: 19950119
  21. NEUPOGEN [Concomitant]
     Dates: start: 19941230, end: 19950119

REACTIONS (5)
  - BLOOD ALKALINE PHOSPHATASE INCREASED [None]
  - CHOLESTASIS [None]
  - DEATH [None]
  - GAMMA-GLUTAMYLTRANSFERASE INCREASED [None]
  - PYREXIA [None]
